FAERS Safety Report 21134781 (Version 1)
Quarter: 2022Q3

REPORT INFORMATION
  Report Type: Spontaneous
  Country: US (occurrence: US)
  Receive Date: 20220727
  Receipt Date: 20220727
  Transmission Date: 20221026
  Serious: No
  Sender: FDA-Public Use
  Company Number: US-TEVA-2022-US-2054405

PATIENT
  Age: 79 Year
  Sex: Female

DRUGS (2)
  1. ALBUTEROL SULFATE [Suspect]
     Active Substance: ALBUTEROL SULFATE
     Indication: Dyspnoea
     Dosage: 90 MCG/DOSE
     Route: 065
     Dates: start: 2022
  2. BREZTRI [Concomitant]
     Active Substance: BUDESONIDE\FORMOTEROL\GLYCOPYRROLATE
     Indication: Product used for unknown indication
     Dosage: TWICE DAILY

REACTIONS (5)
  - Asthenia [Not Recovered/Not Resolved]
  - Full blood count abnormal [Unknown]
  - Vitamin D decreased [Unknown]
  - Limb discomfort [Not Recovered/Not Resolved]
  - Stress [Unknown]
